FAERS Safety Report 5426418-6 (Version None)
Quarter: 2007Q3

REPORT INFORMATION
  Report Type: 
  Country: None (occurrence: None)
  Receive Date: 20070827
  Receipt Date: 20070823
  Transmission Date: 20080115
  Serious: Yes (Hospitalization)
  Sender: FDA-Public Use
  Company Number: HQWYE918806JUL07

PATIENT
  Sex: Female

DRUGS (7)
  1. CORDAREX [Suspect]
     Indication: ARRHYTHMIA
     Route: 048
  2. BETA-ACETYLDIGOXIN [Concomitant]
     Indication: CARDIAC FAILURE
     Route: 048
  3. PANTOPRAZOLE SODIUM [Concomitant]
     Indication: PROPHYLAXIS AGAINST GASTROINTESTINAL ULCER
     Route: 048
  4. FUROSEMID ^DAK^ [Concomitant]
     Indication: HYPERTENSION
     Route: 048
  5. ASS-RATIOPHARM [Concomitant]
     Indication: PLATELET AGGREGATION INHIBITION
     Route: 048
  6. EUTHYROX [Concomitant]
     Indication: HYPOTHYROIDISM
     Dosage: DOSE UNKNOWN
     Route: 048
     Dates: start: 20070201
  7. RAMIPRIL [Concomitant]
     Indication: HYPERTENSION
     Route: 048

REACTIONS (4)
  - HEART RATE DECREASED [None]
  - NAUSEA [None]
  - VOMITING [None]
  - WEIGHT DECREASED [None]
